FAERS Safety Report 8564743-0 (Version None)
Quarter: 2012Q3

REPORT INFORMATION
  Report Type: 
  Country: None (occurrence: None)
  Receive Date: 20120803
  Receipt Date: 20120726
  Transmission Date: 20120928
  Serious: Yes (Death, Hospitalization)
  Sender: FDA-Public Use
  Company Number: FR-CELGENEUS-056-21880-12070706

PATIENT

DRUGS (1)
  1. REVLIMID [Suspect]
     Indication: MULTIPLE MYELOMA
     Route: 048

REACTIONS (5)
  - HEAD INJURY [None]
  - FALL [None]
  - JOINT SWELLING [None]
  - CEREBROVASCULAR ACCIDENT [None]
  - HAEMATOMA [None]
